FAERS Safety Report 6362811-5 (Version None)
Quarter: 2009Q3

REPORT INFORMATION
  Report Type: 
  Country: None (occurrence: None)
  Receive Date: 20090919
  Receipt Date: 20090611
  Transmission Date: 20100115
  Serious: No
  Sender: FDA-Public Use
  Company Number: US-ABBOTT-09P-163-0579365-00

PATIENT
  Sex: Female
  Weight: 76.272 kg

DRUGS (3)
  1. HUMIRA [Suspect]
     Indication: RHEUMATOID ARTHRITIS
     Dates: start: 20060101
  2. DILANTIN [Concomitant]
     Indication: MIGRAINE
  3. PRIMIDONE [Concomitant]
     Indication: MIGRAINE

REACTIONS (1)
  - DRUG DOSE OMISSION [None]
